FAERS Safety Report 5354067-7 (Version None)
Quarter: 2007Q2

REPORT INFORMATION
  Report Type: 
  Country: None (occurrence: None)
  Receive Date: 20070612
  Receipt Date: 20070608
  Transmission Date: 20071010
  Serious: Yes (Other)
  Sender: FDA-Public Use
  Company Number: A0654857A

PATIENT
  Age: 27 Year
  Sex: Male

DRUGS (7)
  1. ADVAIR DISKUS 100/50 [Suspect]
     Indication: ASTHMA
     Dosage: 1PUFF TWICE PER DAY
     Route: 055
  2. PREDNISONE TAB [Concomitant]
  3. ZITHROMAX [Concomitant]
  4. AUGMENTIN '125' [Concomitant]
  5. MEDROL [Concomitant]
  6. NASACORT [Concomitant]
  7. ALBUTEROL [Concomitant]

REACTIONS (7)
  - CONTUSION [None]
  - EAR INFECTION [None]
  - IMMUNODEFICIENCY [None]
  - PNEUMONIA [None]
  - SINUSITIS [None]
  - UPPER RESPIRATORY TRACT INFECTION [None]
  - WHITE BLOOD CELL COUNT INCREASED [None]
